FAERS Safety Report 11932145 (Version 1)
Quarter: 2016Q1

REPORT INFORMATION
  Report Type: Spontaneous
  Country: DK (occurrence: FR)
  Receive Date: 20160120
  Receipt Date: 20160120
  Transmission Date: 20160526
  Serious: Yes (Hospitalization)
  Sender: FDA-Public Use
  Company Number: FR-FRI-1000082203

PATIENT
  Age: 28 Year
  Sex: Female

DRUGS (4)
  1. TERALITHE [Suspect]
     Active Substance: LITHIUM CARBONATE
     Dosage: OVERDOSE OF UNKNOWN NUMBER OF TABLETS ONCE
     Route: 048
     Dates: start: 20151202, end: 20151202
  2. ESCITALOPRAM [Suspect]
     Active Substance: ESCITALOPRAM OXALATE
     Dosage: OVERDOSE OF UNKNOWN TABLETS ONCE
     Route: 048
     Dates: start: 20151202, end: 20151202
  3. TERALITHE [Suspect]
     Active Substance: LITHIUM CARBONATE
     Indication: BIPOLAR DISORDER
     Route: 048
  4. ESCITALOPRAM [Suspect]
     Active Substance: ESCITALOPRAM OXALATE
     Indication: BIPOLAR DISORDER
     Dosage: OVERDOSE OF UNKNOWN NUMBER OF TABLETS ONCE
     Route: 048

REACTIONS (3)
  - Antipsychotic drug level above therapeutic [Recovered/Resolved]
  - Tremor [Recovered/Resolved]
  - Intentional overdose [Recovered/Resolved]

NARRATIVE: CASE EVENT DATE: 20151202
